FAERS Safety Report 9732068 (Version 1)
Quarter: 2013Q4

REPORT INFORMATION
  Report Type: Spontaneous
  Country: US (occurrence: US)
  Receive Date: 20131204
  Receipt Date: 20131204
  Transmission Date: 20140711
  Serious: No
  Sender: FDA-Public Use
  Company Number: US-009507513-1311USA006510

PATIENT
  Age: 72 Year
  Sex: Female

DRUGS (1)
  1. SINEMET [Suspect]
     Indication: PARKINSON^S DISEASE
     Dosage: 25-100 WITH DOTS ON ONE SIDE AND 650 ON THE OTHER SIDE
     Route: 048

REACTIONS (3)
  - Parkinson^s disease [Unknown]
  - Product physical issue [Unknown]
  - Suspected counterfeit product [Unknown]
